FAERS Safety Report 21618048 (Version 1)
Quarter: 2022Q4

REPORT INFORMATION
  Report Type: Report from Study
  Country: US (occurrence: US)
  Receive Date: 20221119
  Receipt Date: 20221119
  Transmission Date: 20230113
  Serious: No
  Sender: FDA-Public Use
  Company Number: US-ABBVIE-4158456

PATIENT
  Age: 28 Year
  Sex: Female

DRUGS (3)
  1. HUMIRA [Suspect]
     Active Substance: ADALIMUMAB
     Indication: Hidradenitis
     Dosage: CF
     Route: 058
  2. COVID-19 vaccine [Concomitant]
     Indication: COVID-19 immunisation
     Route: 030
  3. COVID-19 vaccine [Concomitant]
     Indication: COVID-19 immunisation
     Dosage: BOOSTER
     Route: 030

REACTIONS (2)
  - Hidradenitis [Recovered/Resolved]
  - COVID-19 [Unknown]

NARRATIVE: CASE EVENT DATE: 20220901
